FAERS Safety Report 14476062 (Version 2)
Quarter: 2018Q1

REPORT INFORMATION
  Report Type: Spontaneous
  Country: US (occurrence: US)
  Receive Date: 20180201
  Receipt Date: 20180226
  Transmission Date: 20180509
  Serious: No
  Sender: FDA-Public Use
  Company Number: US-LUNDBECK-DKLU2039548

PATIENT
  Sex: Male
  Weight: 173 kg

DRUGS (1)
  1. NORTHERA [Suspect]
     Active Substance: DROXIDOPA
     Indication: PRODUCT USED FOR UNKNOWN INDICATION
     Dosage: SCHEDULE C-FIXED DOSE
     Route: 048
     Dates: start: 20171005

REACTIONS (1)
  - Peripheral swelling [Not Recovered/Not Resolved]
